FAERS Safety Report 9280438 (Version 1)
Quarter: 2013Q2

REPORT INFORMATION
  Report Type: Spontaneous
  Country: US (occurrence: None)
  Receive Date: 20130507
  Receipt Date: 20130507
  Transmission Date: 20140414
  Serious: Yes (Life-Threatening, Hospitalization)
  Sender: FDA-Public Use
  Company Number: None

PATIENT
  Age: 45 Year
  Sex: Female
  Weight: 56 kg

DRUGS (1)
  1. PENTOSAN POLYSULFATE SODIUM [Suspect]
     Dosage: 200MG AM, 100MG PM ??

REACTIONS (2)
  - Shock haemorrhagic [None]
  - Vascular pseudoaneurysm [None]
